FAERS Safety Report 7571411-0 (Version None)
Quarter: 2011Q2

REPORT INFORMATION
  Report Type: 
  Country: None (occurrence: None)
  Receive Date: 20110624
  Receipt Date: 20110614
  Transmission Date: 20111010
  Serious: Yes (Hospitalization)
  Sender: FDA-Public Use
  Company Number: PHHY2011IT53048

PATIENT
  Age: 44 Year
  Sex: Female

DRUGS (1)
  1. METHOTREXATE [Suspect]
     Indication: CROHN'S DISEASE
     Dosage: 15 MG, QW
     Route: 048
     Dates: start: 20030401

REACTIONS (15)
  - INTERSTITIAL LUNG DISEASE [None]
  - LUNG INFILTRATION [None]
  - RESPIRATORY ALKALOSIS [None]
  - DYSPNOEA [None]
  - CARBON MONOXIDE DIFFUSING CAPACITY DECREASED [None]
  - ANAEMIA [None]
  - PYREXIA [None]
  - OBSTRUCTIVE AIRWAYS DISORDER [None]
  - WHITE BLOOD CELL COUNT INCREASED [None]
  - PNEUMONITIS [None]
  - COUGH [None]
  - HYPERVENTILATION [None]
  - DYSPNOEA EXERTIONAL [None]
  - SUPRAVENTRICULAR TACHYCARDIA [None]
  - INFLAMMATORY MARKER INCREASED [None]
